FAERS Safety Report 9818513 (Version 1)
Quarter: 2013Q4

REPORT INFORMATION
  Report Type: Spontaneous
  Country: US (occurrence: None)
  Receive Date: 20131223
  Receipt Date: 20131223
  Transmission Date: 20140711
  Serious: No
  Sender: FDA-Public Use
  Company Number: 221811

PATIENT
  Sex: Male

DRUGS (2)
  1. PICATO [Suspect]
     Indication: ACTINIC KERATOSIS
     Route: 061
     Dates: start: 201305, end: 201305
  2. PICATO [Suspect]
     Indication: ACTINIC CHEILITIS
     Route: 061
     Dates: start: 201305, end: 201305

REACTIONS (4)
  - Drug administered at inappropriate site [None]
  - Off label use [None]
  - Incorrect drug administration duration [None]
  - Application site pain [None]
